FAERS Safety Report 8821036 (Version 2)
Quarter: 2015Q2

REPORT INFORMATION
  Report Type: Report from Study
  Country: US (occurrence: US)
  Receive Date: 20121002
  Receipt Date: 20150630
  Transmission Date: 20150821
  Serious: Yes (Death)
  Sender: FDA-Public Use
  Company Number: US-ROCHE-1130063

PATIENT
  Sex: Female

DRUGS (15)
  1. MAALOX (ALUMINUM HYDROXIDE/MAGNESIUM HYDROXIDE) [Concomitant]
  2. ZOMETA [Concomitant]
     Active Substance: ZOLEDRONIC ACID
     Route: 042
  3. TYLENOL [Concomitant]
     Active Substance: ACETAMINOPHEN
     Route: 048
  4. TYLENOL [Concomitant]
     Active Substance: ACETAMINOPHEN
     Route: 048
  5. BLEOMYCIN [Concomitant]
     Active Substance: BLEOMYCIN SULFATE
     Route: 058
  6. TAGAMET [Concomitant]
     Active Substance: CIMETIDINE
  7. RITUXAN [Suspect]
     Active Substance: RITUXIMAB
     Indication: PLASMA CELL MYELOMA
     Dosage: 6 WEEKS EVERY 3 MONTHS
     Route: 042
     Dates: start: 20000706
  8. TYLENOL [Concomitant]
     Active Substance: ACETAMINOPHEN
     Route: 048
  9. VINCRISTINE [Concomitant]
     Active Substance: VINCRISTINE
     Route: 042
  10. SOLU-MEDROL [Concomitant]
     Active Substance: METHYLPREDNISOLONE SODIUM SUCCINATE
     Route: 042
  11. AREDIA [Concomitant]
     Active Substance: PAMIDRONATE DISODIUM
     Route: 042
  12. ALKERAN [Concomitant]
     Active Substance: MELPHALAN
  13. BENADRYL [Concomitant]
     Active Substance: DIPHENHYDRAMINE HYDROCHLORIDE
     Route: 042
  14. ZOMETA [Concomitant]
     Active Substance: ZOLEDRONIC ACID
     Route: 042
  15. ANZEMET [Concomitant]
     Active Substance: DOLASETRON MESYLATE
     Route: 042

REACTIONS (14)
  - Dyspnoea [Unknown]
  - Body temperature fluctuation [Unknown]
  - Musculoskeletal pain [Recovered/Resolved]
  - Insomnia [Unknown]
  - Death [Fatal]
  - Pain in extremity [Unknown]
  - Peripheral swelling [Unknown]
  - Rash [Unknown]
  - Post herpetic neuralgia [Unknown]
  - Dysphonia [Unknown]
  - Fatigue [Unknown]
  - Pain [Unknown]
  - Stomatitis [Unknown]
  - Cough [Unknown]
